FAERS Safety Report 16965161 (Version 1)
Quarter: 2019Q4

REPORT INFORMATION
  Report Type: Spontaneous
  Country: GB (occurrence: GB)
  Receive Date: 20191028
  Receipt Date: 20191028
  Transmission Date: 20200122
  Serious: Yes (Other)
  Sender: FDA-Public Use
  Company Number: GB-STRIDES ARCOLAB LIMITED-2019SP010484

PATIENT
  Age: 52 Year
  Sex: Male

DRUGS (3)
  1. PROMETHAZINE HYDROCHLORIDE. [Suspect]
     Active Substance: PROMETHAZINE HYDROCHLORIDE
     Indication: MOTION SICKNESS
     Dosage: UNK
     Route: 065
  2. PROMETHAZINE HYDROCHLORIDE. [Suspect]
     Active Substance: PROMETHAZINE HYDROCHLORIDE
     Indication: INVESTIGATION
     Dosage: 10 MILLIGRAM (GRADED FASHION)
     Route: 048
  3. NIGHT NURSE                        /01423901/ [Suspect]
     Active Substance: ACETAMINOPHEN\DEXTROMETHORPHAN HYDROBROMIDE\PROMETHAZINE HYDROCHLORIDE
     Indication: SEDATION
     Dosage: UNK
     Route: 065

REACTIONS (10)
  - Erythema [Unknown]
  - Paraesthesia [Unknown]
  - Hyperhidrosis [Unknown]
  - Tremor [Unknown]
  - Paralysis [Unknown]
  - Anaphylactic reaction [Unknown]
  - Flushing [Unknown]
  - Hypotension [Unknown]
  - Urticaria [Unknown]
  - Pruritus [Unknown]
